FAERS Safety Report 5405370-3 (Version None)
Quarter: 2007Q3

REPORT INFORMATION
  Report Type: 
  Country: None (occurrence: None)
  Receive Date: 20070803
  Receipt Date: 20070726
  Transmission Date: 20080115
  Serious: Yes (Hospitalization)
  Sender: FDA-Public Use
  Company Number: FR-PFIZER INC-2007056050

PATIENT
  Sex: Male
  Weight: 51 kg

DRUGS (2)
  1. ESTRACYT [Suspect]
     Indication: PROSTATE CANCER
     Dosage: TEXT:1 TABLET-FREQ:DAILY
     Route: 048
     Dates: start: 20070608, end: 20070722
  2. TRIPTORELIN [Concomitant]

REACTIONS (1)
  - SUBILEUS [None]
